FAERS Safety Report 21337843 (Version 1)
Quarter: 2022Q3

REPORT INFORMATION
  Report Type: Spontaneous
  Country: US (occurrence: US)
  Receive Date: 20220915
  Receipt Date: 20220915
  Transmission Date: 20221026
  Serious: No
  Sender: FDA-Public Use
  Company Number: US-009507513-2208USA008718

PATIENT
  Sex: Female

DRUGS (1)
  1. TRUSOPT [Suspect]
     Active Substance: DORZOLAMIDE HYDROCHLORIDE
     Dosage: UNK
     Dates: end: 2021

REACTIONS (3)
  - Adverse drug reaction [Unknown]
  - Ill-defined disorder [Unknown]
  - Asthma [Unknown]

NARRATIVE: CASE EVENT DATE: 20210101
